FAERS Safety Report 4753993-7 (Version None)
Quarter: 2005Q3

REPORT INFORMATION
  Report Type: 
  Country: None (occurrence: None)
  Receive Date: 20050826
  Receipt Date: 20050311
  Transmission Date: 20060218
  Serious: Yes (Hospitalization)
  Sender: FDA-Public Use
  Company Number: US-MERCK-0503USA02670

PATIENT
  Age: 61 Year
  Sex: Male
  Weight: 76 kg

DRUGS (7)
  1. VIOXX [Suspect]
     Indication: ARTHRALGIA
     Route: 048
     Dates: start: 20020201, end: 20030101
  2. PROZAC [Concomitant]
     Route: 065
     Dates: start: 20000101, end: 20041201
  3. LORTAB [Concomitant]
     Indication: PAIN
     Route: 065
     Dates: start: 20030601
  4. AMBIEN [Concomitant]
     Indication: SLEEP DISORDER
     Route: 065
     Dates: start: 20030101
  5. ENDUR-ACIN [Concomitant]
     Route: 065
     Dates: start: 20030101
  6. PLAVIX [Concomitant]
     Indication: CARDIAC DISORDER
     Route: 065
     Dates: start: 20030101
  7. LIPITOR [Concomitant]
     Indication: BLOOD CHOLESTEROL ABNORMAL
     Route: 065
     Dates: start: 20030101

REACTIONS (6)
  - CHEST PAIN [None]
  - CYST [None]
  - HYPOAESTHESIA [None]
  - OBSTRUCTION [None]
  - STENT PLACEMENT [None]
  - SYNCOPE [None]
